FAERS Safety Report 4924481-X (Version None)
Quarter: 2006Q1

REPORT INFORMATION
  Report Type: 
  Country: None (occurrence: None)
  Receive Date: 20060227
  Receipt Date: 20060221
  Transmission Date: 20060701
  Serious: Yes (Death)
  Sender: FDA-Public Use
  Company Number: PHHO2006AR03175

PATIENT
  Age: 81 Year
  Sex: Male

DRUGS (1)
  1. ZELMAC / HTF 919A [Suspect]
     Indication: CONSTIPATION
     Route: 048
     Dates: start: 20051001

REACTIONS (1)
  - PANCREATIC CARCINOMA [None]
